FAERS Safety Report 9746404 (Version 1)
Quarter: 2013Q4

REPORT INFORMATION
  Report Type: Spontaneous
  Country: IT (occurrence: IT)
  Receive Date: 20131211
  Receipt Date: 20131211
  Transmission Date: 20140711
  Serious: Yes (Hospitalization)
  Sender: FDA-Public Use
  Company Number: IT-GLAXOSMITHKLINE-B0914248A

PATIENT
  Age: 39 Year
  Sex: Female

DRUGS (4)
  1. ORAXIM [Suspect]
     Indication: OTORRHOEA
     Dosage: 500MG PER DAY
     Route: 048
     Dates: start: 20130624, end: 20130630
  2. CIPROFLOXACIN HYDROCHLORIDE [Suspect]
     Indication: OTORRHOEA
     Dosage: 2DROP PER DAY
     Route: 001
     Dates: start: 20130627, end: 20130701
  3. RINOCIDINA [Suspect]
     Indication: OTORRHOEA
     Dosage: 6DROP PER DAY
     Route: 045
     Dates: start: 20130627, end: 20130701
  4. FLUIMUCIL [Suspect]
     Indication: OTORRHOEA
     Dosage: 600MG PER DAY
     Route: 048
     Dates: start: 20130627, end: 20130701

REACTIONS (4)
  - Rash generalised [Recovered/Resolved]
  - Urticaria [Recovered/Resolved]
  - Pruritus [Recovered/Resolved]
  - Skin discolouration [Recovered/Resolved]
